FAERS Safety Report 11215143 (Version 1)
Quarter: 2015Q2

REPORT INFORMATION
  Report Type: Spontaneous
  Country: FR (occurrence: FR)
  Receive Date: 20150624
  Receipt Date: 20150624
  Transmission Date: 20150821
  Serious: Yes (Hospitalization, Other)
  Sender: FDA-Public Use
  Company Number: FR-ELI_LILLY_AND_COMPANY-FR201506007974

PATIENT
  Age: 50 Year
  Sex: Male
  Weight: 74 kg

DRUGS (7)
  1. CISPLATIN. [Concomitant]
     Active Substance: CISPLATIN
     Indication: BLADDER CANCER
     Dosage: UNK
     Route: 065
     Dates: start: 201406
  2. ANETHOLE TRITHIONE [Concomitant]
     Indication: MUCOSAL INFLAMMATION
     Dosage: UNK
     Route: 065
     Dates: start: 20140918
  3. CRIZOTINIB [Suspect]
     Active Substance: CRIZOTINIB
     Indication: BLADDER CANCER
     Dosage: UNK
     Route: 048
     Dates: start: 20140905
  4. GEMZAR [Suspect]
     Active Substance: GEMCITABINE HYDROCHLORIDE
     Indication: BLADDER CANCER
     Dosage: UNK
     Route: 065
     Dates: end: 201406
  5. TROSPIUM CHLORIDE. [Concomitant]
     Active Substance: TROSPIUM CHLORIDE
     Indication: URINARY INCONTINENCE
     Dosage: UNK
     Route: 065
  6. AMLOR [Suspect]
     Active Substance: AMLODIPINE BESYLATE
     Indication: HYPERTENSION
     Dosage: 10 MG, UNKNOWN
     Route: 065
     Dates: start: 20140918, end: 20141012
  7. RILMENIDINE [Concomitant]
     Active Substance: RILMENIDINE
     Indication: HYPERTENSION
     Dosage: UNK
     Route: 065
     Dates: start: 20140925

REACTIONS (9)
  - Acute kidney injury [Recovered/Resolved]
  - Systemic inflammatory response syndrome [Unknown]
  - Normochromic normocytic anaemia [Unknown]
  - Gamma-glutamyltransferase increased [Unknown]
  - Thrombotic microangiopathy [Unknown]
  - Leukocytosis [Unknown]
  - Hypokalaemia [Unknown]
  - Cell death [Unknown]
  - Oedema peripheral [Recovered/Resolved]

NARRATIVE: CASE EVENT DATE: 201406
